FAERS Safety Report 10881538 (Version 1)
Quarter: 2015Q1

REPORT INFORMATION
  Report Type: Spontaneous
  Country: IN (occurrence: None)
  Receive Date: 20150226
  Receipt Date: 20150226
  Transmission Date: 20150721
  Serious: Yes (Other)
  Sender: FDA-Public Use
  Company Number: 2015HINLIT0176

PATIENT
  Age: 19 Year
  Sex: Female

DRUGS (10)
  1. ISONIAZID (ISONIAZID) [Suspect]
     Active Substance: ISONIAZID
     Indication: TUBERCULOSIS
     Dates: start: 20110512
  2. PYRAZINAMIDE (PYRAZINAMIDE) [Suspect]
     Active Substance: PYRAZINAMIDE
     Indication: TUBERCULOSIS
     Dates: start: 20110512
  3. CYCLOSERINE. [Suspect]
     Active Substance: CYCLOSERINE
     Indication: TUBERCULOSIS
     Dates: start: 20110512
  4. CAPREOMYCIN [Suspect]
     Active Substance: CAPREOMYCIN
     Indication: TUBERCULOSIS
     Dates: start: 20110512
  5. LAMIVUDINE (LAMIVUDINE) UNKNOWN [Suspect]
     Active Substance: LAMIVUDINE
     Indication: ANTIRETROVIRAL THERAPY
  6. TENOFOVIR (TENOFOVIR) UNKNOWN [Suspect]
     Active Substance: TENOFOVIR
  7. ATAZANAVIR + RITONAVIR (ATAZANAVIR, RITONAVIR) UNKNOWN [Suspect]
     Active Substance: ATAZANAVIR\RITONAVIR
     Indication: ANTIRETROVIRAL THERAPY
  8. CLOFAZIMINE [Suspect]
     Active Substance: CLOFAZIMINE
     Indication: TUBERCULOSIS
     Dates: start: 20110512
  9. ETHIONAMIDE (ETHIONAMIDE) [Suspect]
     Active Substance: ETHIONAMIDE
     Indication: TUBERCULOSIS
     Dates: start: 20110512
  10. MOXIFLOXACIN (MOXIFLOXACIN) [Suspect]
     Active Substance: MOXIFLOXACIN
     Indication: TUBERCULOSIS
     Dates: start: 20110512

REACTIONS (2)
  - Psychotic disorder [None]
  - Nephropathy toxic [None]
